FAERS Safety Report 9837927 (Version 3)
Quarter: 2014Q2

REPORT INFORMATION
  Report Type: Spontaneous
  Country: US (occurrence: US)
  Receive Date: 20140123
  Receipt Date: 20140509
  Transmission Date: 20141212
  Serious: Yes (Hospitalization)
  Sender: FDA-Public Use
  Company Number: US-BAYER-2014-010279

PATIENT
  Age: 22 Year
  Sex: Female
  Weight: 45.35 kg

DRUGS (2)
  1. MIRENA [Suspect]
     Indication: CONTRACEPTION
     Dosage: 20 MCG/24HR, CONT
     Route: 015
     Dates: start: 20090126, end: 20120730
  2. HYDROCODONE/ACETAMINOPHEN [Concomitant]
     Dosage: 7.5/650 MG
     Route: 048

REACTIONS (7)
  - Uterine perforation [None]
  - Tubo-ovarian abscess [None]
  - Appendicitis perforated [None]
  - Pelvic abscess [None]
  - Injury [None]
  - Abdominal pain [None]
  - Emotional distress [None]
